FAERS Safety Report 4325977-4 (Version None)
Quarter: 2004Q1

REPORT INFORMATION
  Report Type: 
  Country: None (occurrence: None)
  Receive Date: 20040329
  Receipt Date: 20040227
  Transmission Date: 20041129
  Serious: Yes (Other)
  Sender: FDA-Public Use
  Company Number: FR-GLAXOSMITHKLINE-B0324882A

PATIENT
  Age: 54 Year
  Sex: Male
  Weight: 80 kg

DRUGS (2)
  1. IMIGRANE [Suspect]
     Indication: MIGRAINE
     Route: 045
     Dates: start: 20030319
  2. ASPRO ACCEL [Concomitant]
     Indication: MIGRAINE
     Route: 048

REACTIONS (6)
  - BACK PAIN [None]
  - DRUG DEPENDENCE [None]
  - DRY MOUTH [None]
  - GASTROOESOPHAGEAL REFLUX DISEASE [None]
  - INSOMNIA [None]
  - KERATOCONJUNCTIVITIS SICCA [None]
